FAERS Safety Report 10181758 (Version 1)
Quarter: 2014Q2

REPORT INFORMATION
  Report Type: Spontaneous
  Country: GB (occurrence: GB)
  Receive Date: 20140519
  Receipt Date: 20140519
  Transmission Date: 20141212
  Serious: Yes (Other)
  Sender: FDA-Public Use
  Company Number: GB-MYLANLABS-2014S1010516

PATIENT
  Age: 64 Year
  Sex: Female

DRUGS (3)
  1. LANSOPRAZOLE [Suspect]
     Dates: start: 20140414, end: 20140414
  2. DURAPHAT [Concomitant]
     Dates: start: 20140412
  3. BISOPROLOL [Concomitant]
     Dosage: STARTED APPROXIMATELY 2009. ONGOING.

REACTIONS (7)
  - Malaise [Recovered/Resolved]
  - Dizziness [Recovered/Resolved]
  - Body temperature increased [Recovered/Resolved]
  - Wheezing [Recovered/Resolved]
  - Chest discomfort [Recovered/Resolved]
  - Reaction to colouring [Unknown]
  - Product substitution issue [Unknown]
